FAERS Safety Report 5161051-5 (Version None)
Quarter: 2006Q4

REPORT INFORMATION
  Report Type: 
  Country: None (occurrence: None)
  Receive Date: 20061121
  Receipt Date: 20061107
  Transmission Date: 20070319
  Serious: Yes (Other)
  Sender: FDA-Public Use
  Company Number: 2006141021

PATIENT
  Age: 25 Year
  Sex: Female
  Weight: 64 kg

DRUGS (3)
  1. ATARAX [Suspect]
     Dosage: ORAL
     Route: 048
     Dates: start: 20061106
  2. AUGMENTIN '125' [Suspect]
     Dosage: ORAL
     Route: 048
     Dates: start: 20061106
  3. AMOXICILLIN TRIHYDRATE [Suspect]
     Dosage: 10 GRAM, ORAL
     Route: 048
     Dates: start: 20061106

REACTIONS (4)
  - INCORRECT DOSE ADMINISTERED [None]
  - NAUSEA [None]
  - SUICIDE ATTEMPT [None]
  - VOMITING [None]
